FAERS Safety Report 9628400 (Version 1)
Quarter: 2013Q4

REPORT INFORMATION
  Report Type: Spontaneous
  Country: US (occurrence: US)
  Receive Date: 20131017
  Receipt Date: 20131017
  Transmission Date: 20140711
  Serious: Yes (Other)
  Sender: FDA-Public Use
  Company Number: US-PFIZER INC-2013296912

PATIENT
  Sex: Female

DRUGS (1)
  1. EFFEXOR XR [Suspect]
     Indication: MIGRAINE PROPHYLAXIS
     Dosage: UNK
     Dates: end: 201310

REACTIONS (7)
  - Suicidal ideation [Unknown]
  - Drug withdrawal syndrome [Unknown]
  - Hypoaesthesia [Unknown]
  - Irritability [Unknown]
  - Malaise [Unknown]
  - Crying [Unknown]
  - Off label use [Unknown]
